FAERS Safety Report 11762502 (Version 1)
Quarter: 2015Q4

REPORT INFORMATION
  Report Type: Spontaneous
  Country: US (occurrence: US)
  Receive Date: 20151120
  Receipt Date: 20151120
  Transmission Date: 20160304
  Serious: No
  Sender: FDA-Public Use
  Company Number: US-ELI_LILLY_AND_COMPANY-US201301009814

PATIENT
  Sex: Female

DRUGS (1)
  1. FORTEO [Suspect]
     Active Substance: TERIPARATIDE
     Indication: OSTEOPOROSIS
     Dosage: 20 UG, QD

REACTIONS (10)
  - Sinusitis [Unknown]
  - Nausea [Unknown]
  - Palpitations [Unknown]
  - Hypersensitivity [Unknown]
  - Drug hypersensitivity [Unknown]
  - Bone pain [Unknown]
  - Hyperhidrosis [Unknown]
  - Influenza [Not Recovered/Not Resolved]
  - Hypokinesia [Unknown]
  - Rhinorrhoea [Unknown]
